FAERS Safety Report 20016651 (Version 1)
Quarter: 2021Q4

REPORT INFORMATION
  Report Type: Spontaneous
  Country: US (occurrence: None)
  Receive Date: 20211104
  Receipt Date: 20211104
  Transmission Date: 20220303
  Serious: Yes (Other)
  Sender: FDA-Public Use
  Company Number: None

PATIENT
  Age: 46 Year
  Sex: Male
  Weight: 96.75 kg

DRUGS (1)
  1. HYDROCORTISONE [Suspect]
     Active Substance: HYDROCORTISONE
     Indication: Adrenal insufficiency
     Dosage: FREQUENCY : 3 TIMES A DAY;?
     Route: 048
     Dates: start: 20211013

REACTIONS (7)
  - Product substitution issue [None]
  - Fatigue [None]
  - Lethargy [None]
  - Somnolence [None]
  - Abdominal discomfort [None]
  - Gastrooesophageal reflux disease [None]
  - Symptom recurrence [None]

NARRATIVE: CASE EVENT DATE: 20211015
